FAERS Safety Report 24740302 (Version 2)
Quarter: 2025Q1

REPORT INFORMATION
  Report Type: Spontaneous
  Country: US (occurrence: US)
  Receive Date: 20241216
  Receipt Date: 20250108
  Transmission Date: 20250408
  Serious: Yes (Other)
  Sender: ORGANON
  Company Number: US-ORGANON-O2412USA000944

PATIENT
  Sex: Female

DRUGS (2)
  1. MAXALT [Suspect]
     Active Substance: RIZATRIPTAN BENZOATE
     Indication: Migraine
     Dosage: 10 MILLIGRAM, PRN
     Route: 048
     Dates: start: 2021
  2. METOPROLOL [Concomitant]
     Active Substance: METOPROLOL
     Indication: Atrial fibrillation
     Route: 048

REACTIONS (2)
  - Abortion spontaneous [Recovered/Resolved]
  - Maternal exposure during pregnancy [Recovered/Resolved]

NARRATIVE: CASE EVENT DATE: 20241016
